FAERS Safety Report 15793006 (Version 1)
Quarter: 2019Q1

REPORT INFORMATION
  Report Type: Spontaneous
  Country: DE (occurrence: DE)
  Receive Date: 20190107
  Receipt Date: 20190107
  Transmission Date: 20190417
  Serious: Yes (Hospitalization, Other)
  Sender: FDA-Public Use
  Company Number: DE-TEVA-2019-DE-995510

PATIENT
  Sex: Male

DRUGS (2)
  1. CIPROFLOXACIN. [Suspect]
     Active Substance: CIPROFLOXACIN
     Indication: URINARY TRACT INFECTION BACTERIAL
     Dosage: 1000 MILLIGRAM DAILY; 20X500MG WURDEN VERORDNET
     Route: 065
     Dates: start: 20180723, end: 20180727
  2. CIPRO [Suspect]
     Active Substance: CIPROFLOXACIN HYDROCHLORIDE
     Indication: URINARY TRACT INFECTION BACTERIAL
     Dosage: 12X250MG
     Route: 065
     Dates: start: 20180712

REACTIONS (9)
  - Decreased appetite [Unknown]
  - Nausea [Unknown]
  - Headache [Unknown]
  - Sleep disorder [Unknown]
  - Vomiting [Unknown]
  - Pain in extremity [Unknown]
  - Tongue coated [Unknown]
  - Restlessness [Unknown]
  - Urosepsis [Unknown]

NARRATIVE: CASE EVENT DATE: 201807
